FAERS Safety Report 9633396 (Version 2)
Quarter: 2013Q4

REPORT INFORMATION
  Report Type: Spontaneous
  Country: US (occurrence: US)
  Receive Date: 20131021
  Receipt Date: 20131021
  Transmission Date: 20140711
  Serious: No
  Sender: FDA-Public Use
  Company Number: US-BRISTOL-MYERS SQUIBB COMPANY-19183714

PATIENT
  Age: 88 Year
  Sex: Female
  Weight: 86.17 kg

DRUGS (2)
  1. YERVOY [Suspect]
     Indication: MALIGNANT MELANOMA
     Dosage: 3.1MG/KG Q 3WEEKS X 4 DOSES?21AUG13
     Route: 042
     Dates: start: 20130731
  2. PREDNISONE [Concomitant]

REACTIONS (2)
  - Stomatitis [Recovered/Resolved]
  - Lip swelling [Recovered/Resolved]
